FAERS Safety Report 26007053 (Version 1)
Quarter: 2025Q4

REPORT INFORMATION
  Report Type: Spontaneous
  Country: US (occurrence: None)
  Receive Date: 20251106
  Receipt Date: 20251106
  Transmission Date: 20260118
  Serious: Yes (Other)
  Sender: FDA-CTU
  Company Number: None

PATIENT
  Age: 36 Year
  Sex: Male
  Weight: 84.6 kg

DRUGS (5)
  1. ABILIFY [Suspect]
     Active Substance: ARIPIPRAZOLE
     Indication: Depression
     Dates: start: 20220502, end: 20220702
  2. MINOXIDIL [Concomitant]
     Active Substance: MINOXIDIL
  3. Hair skin + nail pills [Concomitant]
  4. hims regrowth foam [Concomitant]
  5. ROGAINE [Concomitant]
     Active Substance: MINOXIDIL

REACTIONS (2)
  - Alopecia [None]
  - Product communication issue [None]

NARRATIVE: CASE EVENT DATE: 20220502
